FAERS Safety Report 6440025-8 (Version None)
Quarter: 2009Q4

REPORT INFORMATION
  Report Type: 
  Country: None (occurrence: None)
  Receive Date: 20091113
  Receipt Date: 20091109
  Transmission Date: 20100525
  Serious: Yes (Other)
  Sender: FDA-Public Use
  Company Number: US-GENENTECH-290296

PATIENT
  Sex: Female
  Weight: 70.748 kg

DRUGS (9)
  1. XOLAIR [Suspect]
     Indication: ASTHMA
     Dosage: 300 MG, Q4W
     Route: 058
     Dates: start: 20090908
  2. VERAMYST [Concomitant]
     Indication: DRUG USE FOR UNKNOWN INDICATION
     Dosage: UNK
  3. ALBUTEROL [Concomitant]
     Indication: COUGH
     Dosage: UNK
     Route: 055
  4. ADVAIR DISKUS 100/50 [Concomitant]
     Indication: ASTHMA
     Dosage: 1 PUFF, BID
     Route: 055
  5. SINGULAIR [Concomitant]
     Indication: ASTHMA
     Dosage: 10 MG, QD
     Route: 048
     Dates: start: 20090710
  6. PALGIC [Concomitant]
     Indication: HYPERSENSITIVITY
     Dosage: 4 MG, QD
     Route: 048
  7. STRATTERA [Concomitant]
     Indication: ATTENTION DEFICIT/HYPERACTIVITY DISORDER
     Dosage: 1 UNK, QD
     Route: 048
  8. OGESTREL 0.5/50-21 [Concomitant]
     Indication: CONTRACEPTION
     Dosage: 1 UNK, QD
     Route: 048
  9. PRISTIQ [Concomitant]
     Indication: DEPRESSION
     Dosage: 1 UNK, QD
     Route: 048

REACTIONS (1)
  - ANAPHYLACTIC REACTION [None]
